FAERS Safety Report 11924244 (Version 2)
Quarter: 2016Q1

REPORT INFORMATION
  Report Type: Spontaneous
  Country: US (occurrence: US)
  Receive Date: 20160118
  Receipt Date: 20160122
  Transmission Date: 20160526
  Serious: No
  Sender: FDA-Public Use
  Company Number: US-HORIZON-PEN-0003-2016

PATIENT
  Age: 84 Year
  Sex: Female

DRUGS (1)
  1. PENNSAID [Suspect]
     Active Substance: DICLOFENAC SODIUM
     Indication: ARTHRALGIA
     Dosage: ONCE DAILY IN THE MORNING
     Route: 061
     Dates: end: 201601

REACTIONS (4)
  - Pain [Recovered/Resolved]
  - Skin exfoliation [Recovered/Resolved]
  - Off label use [Unknown]
  - Muscle spasms [Recovered/Resolved]
